FAERS Safety Report 6034517-3 (Version None)
Quarter: 2009Q1

REPORT INFORMATION
  Report Type: 
  Country: None (occurrence: None)
  Receive Date: 20090108
  Receipt Date: 20081223
  Transmission Date: 20090719
  Serious: Yes (Death)
  Sender: FDA-Public Use
  Company Number: 000051

PATIENT
  Age: 39 Year
  Sex: Female

DRUGS (8)
  1. METHOCARBAMOL [Suspect]
  2. FENTANYL CITRATE [Suspect]
  3. BENZODIAZEPINE DERIVATIVES [Suspect]
  4. CODEINE SUL TAB [Suspect]
  5. HYDROCODONE BITARTRATE [Suspect]
  6. ANTIPSYCHOTICS [Suspect]
  7. MARIJUANA [Suspect]
  8. SERUM LIPID REDUCING AGENTS [Suspect]

REACTIONS (2)
  - COMPLETED SUICIDE [None]
  - INTENTIONAL DRUG MISUSE [None]
